FAERS Safety Report 19661088 (Version 1)
Quarter: 2021Q3

REPORT INFORMATION
  Report Type: Spontaneous
  Country: US (occurrence: US)
  Receive Date: 20210805
  Receipt Date: 20210805
  Transmission Date: 20211014
  Serious: Yes (Death)
  Sender: FDA-Public Use
  Company Number: None

PATIENT
  Age: 81 Year
  Sex: Male

DRUGS (1)
  1. CAPECITABINE 500MG [Suspect]
     Active Substance: CAPECITABINE
     Indication: ANAL CANCER
     Route: 048
     Dates: start: 20210518, end: 202107

REACTIONS (1)
  - Disease progression [None]

NARRATIVE: CASE EVENT DATE: 20210804
